FAERS Safety Report 6879190-7 (Version None)
Quarter: 2010Q3

REPORT INFORMATION
  Report Type: 
  Country: None (occurrence: None)
  Receive Date: 20100728
  Receipt Date: 20100707
  Transmission Date: 20110219
  Serious: Yes (Other)
  Sender: FDA-Public Use
  Company Number: JP-PFIZER INC-2010084368

PATIENT
  Age: 18 Year
  Sex: Male
  Weight: 53 kg

DRUGS (4)
  1. VFEND [Interacting]
     Dosage: 200 MG, 2X/DAY
     Route: 042
  2. TACROLIMUS [Interacting]
     Route: 041
  3. LANSOPRAZOLE [Suspect]
     Dosage: 30 MG, 2X/DAY
     Route: 042
  4. LANSOPRAZOLE [Suspect]
     Dosage: 15 MG, 1X/DAY
     Route: 048

REACTIONS (3)
  - DRUG INTERACTION [None]
  - DRUG LEVEL DECREASED [None]
  - GRAFT VERSUS HOST DISEASE [None]
